FAERS Safety Report 22272888 (Version 1)
Quarter: 2023Q2

REPORT INFORMATION
  Report Type: Report from Study
  Country: US (occurrence: US)
  Receive Date: 20230502
  Receipt Date: 20230502
  Transmission Date: 20230722
  Serious: No
  Sender: FDA-Public Use
  Company Number: US-BIOVITRUM-2023-US-009735

PATIENT
  Sex: Male
  Weight: 87.9 kg

DRUGS (1)
  1. DOPTELET [Suspect]
     Active Substance: AVATROMBOPAG MALEATE
     Indication: Liver disorder
     Dosage: 20 MG TABLET 30^S DAILY
     Route: 048

REACTIONS (3)
  - Product dose omission issue [Unknown]
  - Poor quality sleep [Unknown]
  - Intentional product misuse [Unknown]
